FAERS Safety Report 6914571-4 (Version None)
Quarter: 2010Q3

REPORT INFORMATION
  Report Type: 
  Country: None (occurrence: None)
  Receive Date: 20100809
  Receipt Date: 20100728
  Transmission Date: 20110219
  Serious: Yes (Hospitalization, Other)
  Sender: FDA-Public Use
  Company Number: FR-BAYER-201034430GPV

PATIENT
  Age: 89 Year
  Sex: Female

DRUGS (12)
  1. CIFLOX [Suspect]
     Indication: INFECTION
     Dosage: TOTAL DAILY DOSE: 1000 MG  UNIT DOSE: 500 MG
     Route: 048
     Dates: start: 20100622, end: 20100629
  2. KARDEGIC [Suspect]
     Indication: THROMBOSIS PROPHYLAXIS
     Dosage: TOTAL DAILY DOSE: 75 MG  UNIT DOSE: 75 MG
     Route: 048
     Dates: end: 20100629
  3. KARDEGIC [Suspect]
     Dates: start: 20100702
  4. PLAVIX [Suspect]
     Indication: THROMBOSIS PROPHYLAXIS
     Dosage: TOTAL DAILY DOSE: 75 MG  UNIT DOSE: 75 MG
     Route: 048
     Dates: end: 20100629
  5. PREVISCAN [Suspect]
     Indication: ATRIAL FIBRILLATION
     Dosage: DEPENDENT ON INR VALUE
     Route: 048
     Dates: start: 20100702
  6. PREVISCAN [Suspect]
     Dosage: DEPENDENT ON INR VALUE
     Route: 048
     Dates: end: 20100629
  7. DIFFU K [Concomitant]
     Dosage: LONGTERM THERAPY
  8. PERINDOPRIL ERBUMINE [Concomitant]
     Dosage: LONGTERM THERAPY
  9. NEXIUM [Concomitant]
     Dosage: LONGTERM THERAPY
  10. SOTALOL HCL [Concomitant]
     Dosage: LONGTERM THERAPY
  11. TAHOR [Concomitant]
     Dosage: LONGTERM THERAPY
  12. STILNOX [Concomitant]
     Dosage: LONGTERM THERAPY

REACTIONS (4)
  - HAEMATOMA [None]
  - HAEMATURIA [None]
  - INTERNATIONAL NORMALISED RATIO INCREASED [None]
  - PETECHIAE [None]
